FAERS Safety Report 25005689 (Version 1)
Quarter: 2025Q1

REPORT INFORMATION
  Report Type: Spontaneous
  Country: PT (occurrence: PT)
  Receive Date: 20250224
  Receipt Date: 20250224
  Transmission Date: 20250409
  Serious: Yes (Other)
  Sender: MYLAN
  Company Number: None

PATIENT
  Age: 47 Year
  Sex: Male
  Weight: 90 kg

DRUGS (12)
  1. ATORVASTATIN [Suspect]
     Active Substance: ATORVASTATIN
     Indication: Blood cholesterol increased
     Dosage: 10 MILLIGRAM, QD (1 TABLET DAILY, TAKE AFTER DINNER)
     Dates: start: 20150101, end: 20250115
  2. ATORVASTATIN [Suspect]
     Active Substance: ATORVASTATIN
     Dosage: 10 MILLIGRAM, QD (1 TABLET DAILY, TAKE AFTER DINNER)
     Route: 048
     Dates: start: 20150101, end: 20250115
  3. ATORVASTATIN [Suspect]
     Active Substance: ATORVASTATIN
     Dosage: 10 MILLIGRAM, QD (1 TABLET DAILY, TAKE AFTER DINNER)
     Route: 048
     Dates: start: 20150101, end: 20250115
  4. ATORVASTATIN [Suspect]
     Active Substance: ATORVASTATIN
     Dosage: 10 MILLIGRAM, QD (1 TABLET DAILY, TAKE AFTER DINNER)
     Dates: start: 20150101, end: 20250115
  5. LOSARTAN AND HYDROCHLOROTHIAZIDE [Concomitant]
     Active Substance: HYDROCHLOROTHIAZIDE\LOSARTAN POTASSIUM
  6. LOSARTAN AND HYDROCHLOROTHIAZIDE [Concomitant]
     Active Substance: HYDROCHLOROTHIAZIDE\LOSARTAN POTASSIUM
     Route: 065
  7. LOSARTAN AND HYDROCHLOROTHIAZIDE [Concomitant]
     Active Substance: HYDROCHLOROTHIAZIDE\LOSARTAN POTASSIUM
     Route: 065
  8. LOSARTAN AND HYDROCHLOROTHIAZIDE [Concomitant]
     Active Substance: HYDROCHLOROTHIAZIDE\LOSARTAN POTASSIUM
  9. AMLODIPINE BESYLATE [Concomitant]
     Active Substance: AMLODIPINE BESYLATE
  10. AMLODIPINE BESYLATE [Concomitant]
     Active Substance: AMLODIPINE BESYLATE
     Route: 065
  11. AMLODIPINE BESYLATE [Concomitant]
     Active Substance: AMLODIPINE BESYLATE
     Route: 065
  12. AMLODIPINE BESYLATE [Concomitant]
     Active Substance: AMLODIPINE BESYLATE

REACTIONS (3)
  - Muscle strain [Recovering/Resolving]
  - Back pain [Recovering/Resolving]
  - Muscle spasms [Recovering/Resolving]

NARRATIVE: CASE EVENT DATE: 20230101
